FAERS Safety Report 5825394-1 (Version None)
Quarter: 2008Q3

REPORT INFORMATION
  Report Type: 
  Country: None (occurrence: None)
  Receive Date: 20080729
  Receipt Date: 20071210
  Transmission Date: 20090109
  Serious: No
  Sender: FDA-Public Use
  Company Number: US-BAYER-200514188BCC

PATIENT
  Age: 72 Year
  Sex: Male
  Weight: 70 kg

DRUGS (8)
  1. ALEVE (CAPLET) [Suspect]
     Indication: BACK PAIN
     Dosage: TOTAL DAILY DOSE: 220 MG  UNIT DOSE: 220 MG
     Route: 048
     Dates: start: 20041201
  2. ALEVE [Suspect]
     Indication: ARTHRITIS
     Route: 048
  3. ALEVE [Suspect]
     Route: 048
  4. ALEVE [Suspect]
     Indication: ARTHRITIS
     Route: 048
     Dates: start: 20071101
  5. UNKNOWN VITAMINS [Concomitant]
  6. LOVASTATIN [Concomitant]
  7. FLOMAX [Concomitant]
  8. PROSCAR [Concomitant]

REACTIONS (2)
  - ACNE [None]
  - BLISTER [None]
